FAERS Safety Report 23990709 (Version 1)
Quarter: 2024Q2

REPORT INFORMATION
  Report Type: Spontaneous
  Country: US (occurrence: US)
  Receive Date: 20240619
  Receipt Date: 20240619
  Transmission Date: 20240716
  Serious: Yes (Other)
  Sender: FDA-Public Use
  Company Number: US-BRISTOL-MYERS SQUIBB COMPANY-2024-095382

PATIENT
  Age: 69 Year
  Sex: Male

DRUGS (1)
  1. POMALYST [Suspect]
     Active Substance: POMALIDOMIDE
     Indication: Plasma cell myeloma
     Dosage: FREQUENCY: 1 TIME A DAY ON MONDAY^S, WEDNESDAYS AND FRIDAYS.
     Route: 048
     Dates: start: 202402

REACTIONS (3)
  - Laboratory test abnormal [Unknown]
  - Renal disorder [Unknown]
  - Off label use [Unknown]
